APPROVED DRUG PRODUCT: FINASTERIDE AND TADALAFIL
Active Ingredient: FINASTERIDE; TADALAFIL
Strength: 5MG;5MG
Dosage Form/Route: CAPSULE;ORAL
Application: A218499 | Product #001
Applicant: NOVITIUM PHARMA LLC
Approved: Mar 19, 2025 | RLD: No | RS: No | Type: RX